FAERS Safety Report 17345460 (Version 1)
Quarter: 2020Q1

REPORT INFORMATION
  Report Type: Spontaneous
  Country: CN (occurrence: CN)
  Receive Date: 20200129
  Receipt Date: 20200129
  Transmission Date: 20200409
  Serious: Yes (Hospitalization)
  Sender: FDA-Public Use
  Company Number: CN-EISAI MEDICAL RESEARCH-EC-2020-068786

PATIENT
  Age: 91 Year
  Sex: Male
  Weight: 58 kg

DRUGS (6)
  1. DONEPEZIL. [Suspect]
     Active Substance: DONEPEZIL
     Indication: CEREBRAL INFARCTION
     Route: 048
     Dates: start: 20191120, end: 20191223
  2. MEROPENEM. [Suspect]
     Active Substance: MEROPENEM
     Indication: DECUBITUS ULCER
  3. LINEZOLID. [Suspect]
     Active Substance: LINEZOLID
     Indication: DECUBITUS ULCER
  4. SODIUM CHLORIDE INJECTION [Concomitant]
     Active Substance: SODIUM CHLORIDE
     Indication: PRODUCT USED FOR UNKNOWN INDICATION
     Dosage: FREQUENCY UNKNOWN
     Route: 042
     Dates: start: 20191204, end: 20191220
  5. LINEZOLID. [Suspect]
     Active Substance: LINEZOLID
     Indication: PNEUMONITIS
     Route: 042
     Dates: start: 20191206, end: 20191217
  6. MEROPENEM. [Suspect]
     Active Substance: MEROPENEM
     Indication: PNEUMONITIS
     Route: 042
     Dates: start: 20191204, end: 20191220

REACTIONS (1)
  - Hepatic function abnormal [Recovering/Resolving]

NARRATIVE: CASE EVENT DATE: 20191219
